FAERS Safety Report 4960000-X (Version None)
Quarter: 2006Q1

REPORT INFORMATION
  Report Type: 
  Country: None (occurrence: None)
  Receive Date: 20060327
  Receipt Date: 20060313
  Transmission Date: 20060701
  Serious: Yes (Other)
  Sender: FDA-Public Use
  Company Number: S04-CAN-07580-01

PATIENT
  Age: 27 Year
  Sex: Female
  Weight: 63.5036 kg

DRUGS (10)
  1. CELEXA [Suspect]
     Indication: DEPRESSION
     Dosage: 50 MG QD PO
     Route: 048
     Dates: start: 20051101, end: 20051114
  2. CELEXA [Suspect]
     Indication: DEPRESSION
     Dosage: 40 MG QD PO
     Route: 048
     Dates: start: 20051115, end: 20051101
  3. CELEXA [Suspect]
     Indication: DEPRESSION
     Dosage: 30 MG QD PO
     Route: 048
     Dates: start: 20051101, end: 20051101
  4. CELEXA [Suspect]
     Indication: DEPRESSION
     Dosage: 20 MG QD PO
     Route: 048
     Dates: start: 20051101, end: 20050101
  5. CELEXA [Suspect]
     Indication: DEPRESSION
     Dosage: 10 MG QD PO
     Route: 048
     Dates: start: 20050101, end: 20051208
  6. CELEXA [Suspect]
     Indication: DEPRESSION
     Dosage: 40 MG QD PO
     Route: 048
     Dates: start: 20051001, end: 20051031
  7. CELEXA [Suspect]
     Indication: DEPRESSION
     Dosage: 30 MG QD PO
     Route: 048
     Dates: start: 20030101, end: 20051001
  8. CELEXA [Suspect]
     Indication: DEPRESSION
     Dates: start: 20020101, end: 20030101
  9. VALPROATE SODIUM [Suspect]
     Indication: BIPOLAR DISORDER
     Dates: start: 20050101
  10. MULTIVITAMIN WITH FOLIC ACID [Concomitant]

REACTIONS (26)
  - ANXIETY [None]
  - BIPOLAR II DISORDER [None]
  - BREAST HAEMORRHAGE [None]
  - CALCULUS URINARY [None]
  - CANDIDIASIS [None]
  - CRYING [None]
  - DRUG EXPOSURE DURING PREGNANCY [None]
  - DRUG INEFFECTIVE [None]
  - EUPHORIC MOOD [None]
  - FATIGUE [None]
  - GALACTOSTASIS [None]
  - HYDRONEPHROSIS [None]
  - MANIA [None]
  - NAUSEA [None]
  - NEPHROLITHIASIS [None]
  - NIPPLE DISORDER [None]
  - NIPPLE PAIN [None]
  - PAIN [None]
  - PANIC ATTACK [None]
  - PARAESTHESIA [None]
  - PARANOIA [None]
  - POSTPARTUM DEPRESSION [None]
  - POSTPARTUM HAEMORRHAGE [None]
  - PREGNANCY [None]
  - STREPTOCOCCAL SEROLOGY POSITIVE [None]
  - VAGINAL HAEMORRHAGE [None]
